FAERS Safety Report 5531468-5 (Version None)
Quarter: 2007Q4

REPORT INFORMATION
  Report Type: 
  Country: None (occurrence: None)
  Receive Date: 20071203
  Receipt Date: 20071122
  Transmission Date: 20080405
  Serious: Yes (Other)
  Sender: FDA-Public Use
  Company Number: PHBS2007JP19812

PATIENT

DRUGS (1)
  1. FEMARA [Suspect]

REACTIONS (1)
  - INTERSTITIAL LUNG DISEASE [None]
